FAERS Safety Report 7408778-X (Version None)
Quarter: 2011Q2

REPORT INFORMATION
  Report Type: 
  Country: None (occurrence: None)
  Receive Date: 20110412
  Receipt Date: 20110407
  Transmission Date: 20111010
  Serious: Yes (Death, Other)
  Sender: FDA-Public Use
  Company Number: PHHY2011CH28634

PATIENT
  Age: 73 Year
  Sex: Female

DRUGS (10)
  1. STALEVO 100 [Suspect]
     Dosage: 300 MG
     Dates: start: 20110215
  2. TRITTICO [Suspect]
     Indication: SLEEP DISORDER
     Dosage: 200 MG
     Route: 048
     Dates: start: 20101217, end: 20110131
  3. MADOPAR [Concomitant]
     Dosage: 125 MG
     Dates: start: 20110215
  4. SEROPRAM [Concomitant]
     Indication: DEPRESSION
     Dosage: 20 MG
     Dates: start: 20101230, end: 20110130
  5. ASPIRIN [Concomitant]
     Dosage: UNK
     Dates: start: 20110215
  6. NEXIUM [Concomitant]
     Dosage: UNK
     Dates: start: 20110215
  7. LEPONEX [Suspect]
     Indication: PARKINSON'S DISEASE
  8. MESALAMINE [Concomitant]
     Dosage: UNK
  9. LEPONEX [Suspect]
     Indication: DEMENTIA
     Dosage: 100 MG
     Route: 048
     Dates: start: 20101221, end: 20110128
  10. FLAGYL [Suspect]
     Indication: CLOSTRIDIUM DIFFICILE COLITIS
     Dosage: 1500 MG,
     Dates: start: 20110118, end: 20110125

REACTIONS (6)
  - AGRANULOCYTOSIS [None]
  - GENERAL PHYSICAL HEALTH DETERIORATION [None]
  - BACTERIAL INFECTION [None]
  - C-REACTIVE PROTEIN INCREASED [None]
  - LEUKOPENIA [None]
  - SEPSIS [None]
